FAERS Safety Report 19719887 (Version 2)
Quarter: 2021Q4

REPORT INFORMATION
  Report Type: Spontaneous
  Country: CZ (occurrence: CZ)
  Receive Date: 20210819
  Receipt Date: 20211004
  Transmission Date: 20220303
  Serious: Yes (Other)
  Sender: FDA-Public Use
  Company Number: CZ-TEVA-2021-CZ-1942070

PATIENT
  Age: 68 Year
  Sex: Female

DRUGS (11)
  1. LEUCOVORIN [Suspect]
     Active Substance: LEUCOVORIN
     Indication: Rectosigmoid cancer metastatic
     Dosage: FOLFOX REGIMEN; RECEIVED 9 CYCLES
     Route: 065
     Dates: start: 201609
  2. LEUCOVORIN [Suspect]
     Active Substance: LEUCOVORIN
     Dosage: FUFA REGIMEN; RECEIVED 3 CYCLES
     Route: 065
     Dates: end: 201704
  3. LEUCOVORIN [Suspect]
     Active Substance: LEUCOVORIN
     Dosage: FOLFIRI REGIMEN
     Route: 065
     Dates: start: 201709
  4. OXALIPLATIN [Suspect]
     Active Substance: OXALIPLATIN
     Indication: Rectosigmoid cancer metastatic
     Dosage: FOLFOX REGIMEN; RECEIVED 9 CYCLES
     Route: 065
     Dates: start: 201609
  5. FLUOROURACIL [Suspect]
     Active Substance: FLUOROURACIL
     Indication: Rectosigmoid cancer metastatic
     Dosage: FOLFOX REGIMEN; RECEIVED 9 CYCLES
     Route: 065
     Dates: start: 201609
  6. FLUOROURACIL [Suspect]
     Active Substance: FLUOROURACIL
     Dosage: FUFA REGIMEN; RECEIVED 3 CYCLES
     Route: 065
     Dates: end: 201704
  7. FLUOROURACIL [Suspect]
     Active Substance: FLUOROURACIL
     Dosage: FOLFIRI REGIMEN
     Route: 065
     Dates: start: 201709
  8. IRINOTECAN [Suspect]
     Active Substance: IRINOTECAN
     Indication: Rectosigmoid cancer metastatic
     Dosage: FOLFIRI REGIMEN
     Route: 065
     Dates: start: 201709
  9. LONSURF [Suspect]
     Active Substance: TIPIRACIL HYDROCHLORIDE\TRIFLURIDINE
     Indication: Rectosigmoid cancer metastatic
     Route: 065
     Dates: start: 201810
  10. LONSURF [Suspect]
     Active Substance: TIPIRACIL HYDROCHLORIDE\TRIFLURIDINE
     Route: 065
     Dates: start: 2018
  11. BEVACIZUMAB [Concomitant]
     Active Substance: BEVACIZUMAB
     Indication: Rectosigmoid cancer metastatic
     Route: 065
     Dates: start: 201709

REACTIONS (8)
  - Neuropathy peripheral [Unknown]
  - Nausea [Unknown]
  - Malaise [Unknown]
  - Fatigue [Unknown]
  - Decreased appetite [Unknown]
  - Neutropenia [Unknown]
  - Thrombocytopenia [Unknown]
  - Anaemia [Unknown]
